FAERS Safety Report 9309345 (Version 1)
Quarter: 2013Q2

REPORT INFORMATION
  Report Type: Spontaneous
  Country: US (occurrence: US)
  Receive Date: 20130525
  Receipt Date: 20130525
  Transmission Date: 20140414
  Serious: No
  Sender: FDA-Public Use
  Company Number: US-BRISTOL-MYERS SQUIBB COMPANY-18581835

PATIENT
  Age: 39 Year
  Sex: Female

DRUGS (1)
  1. BYDUREON 2MG VIAL + SYRINGE [Suspect]
     Indication: TYPE 2 DIABETES MELLITUS
     Route: 058
     Dates: start: 201211, end: 201301

REACTIONS (4)
  - Injection site nodule [Unknown]
  - Injection site erythema [Unknown]
  - Injection site warmth [Unknown]
  - Intentional drug misuse [Not Recovered/Not Resolved]
